FAERS Safety Report 7469226-7 (Version None)
Quarter: 2011Q2

REPORT INFORMATION
  Report Type: 
  Country: None (occurrence: None)
  Receive Date: 20110510
  Receipt Date: 20110322
  Transmission Date: 20111010
  Serious: Yes (Hospitalization)
  Sender: FDA-Public Use
  Company Number: US-BAYER-201037703NA

PATIENT
  Age: 37 Year
  Sex: Female
  Weight: 126.98 kg

DRUGS (14)
  1. YASMIN [Suspect]
     Dosage: UNK
     Dates: start: 20020325, end: 20030101
  2. IRON [IRON] [Concomitant]
  3. MAALOX TC [Concomitant]
  4. CLORAZEPATE DIPOTASSIUM [Concomitant]
  5. YASMIN [Suspect]
     Indication: ACNE
     Dosage: UNK
     Dates: start: 20000101, end: 20040101
  6. DONNATAL [Concomitant]
  7. MORPHINE [Concomitant]
  8. ASACOL [Concomitant]
     Dosage: 150 MG, QD
     Dates: start: 20010101
  9. AZATHIOPRINE [Concomitant]
  10. DARVOCET [Concomitant]
  11. YAZ [Suspect]
     Indication: ACNE
  12. PHENERGAN VC [Concomitant]
  13. DROSPIRENONE AND ETHINYL ESTRADIOL [Suspect]
     Indication: ACNE
  14. IMURAN [Concomitant]
     Dosage: UNK
     Dates: start: 20010101

REACTIONS (5)
  - PAIN [None]
  - CHOLECYSTITIS ACUTE [None]
  - GALLBLADDER DISORDER [None]
  - CHOLELITHIASIS [None]
  - CHOLECYSTITIS CHRONIC [None]
